FAERS Safety Report 6740332-5 (Version None)
Quarter: 2010Q2

REPORT INFORMATION
  Report Type: 
  Country: None (occurrence: None)
  Receive Date: 20100520
  Receipt Date: 20090624
  Transmission Date: 20101027
  Serious: Yes (Other)
  Sender: FDA-Public Use
  Company Number: 2009226800

PATIENT
  Age: 36 Year
  Sex: Female
  Weight: 65.8 kg

DRUGS (3)
  1. DEPO-PROVERA [Suspect]
     Indication: CONTRACEPTION
     Dosage: 150 MG, INTRAMUSCULAR
     Route: 030
     Dates: start: 19970904, end: 19990806
  2. KEFLEX [Concomitant]
  3. CLARITIN [Concomitant]

REACTIONS (1)
  - OSTEOPOROSIS [None]
